FAERS Safety Report 24409158 (Version 5)
Quarter: 2024Q4

REPORT INFORMATION
  Report Type: Spontaneous
  Country: IT (occurrence: IT)
  Receive Date: 20241008
  Receipt Date: 20241230
  Transmission Date: 20250114
  Serious: Yes (Hospitalization, Other)
  Sender: BEIGENE
  Company Number: IT-BEIGENE-BGN-2024-015649

PATIENT

DRUGS (12)
  1. BRUKINSA [Suspect]
     Active Substance: ZANUBRUTINIB
     Indication: Waldenstrom^s macroglobulinaemia
     Dosage: 160 MILLIGRAM, BID
     Route: 048
     Dates: start: 20220614
  2. BRUKINSA [Suspect]
     Active Substance: ZANUBRUTINIB
     Indication: Evans syndrome
     Dosage: 160 MILLIGRAM, BID
     Route: 048
  3. BRUKINSA [Suspect]
     Active Substance: ZANUBRUTINIB
     Dosage: 160 MILLIGRAM, BID
     Route: 048
     Dates: start: 20231208
  4. BRUKINSA [Suspect]
     Active Substance: ZANUBRUTINIB
     Dosage: UNK
     Dates: start: 2022
  5. BRUKINSA [Suspect]
     Active Substance: ZANUBRUTINIB
     Dosage: UNK
     Dates: start: 202409
  6. Pritor [Concomitant]
     Indication: Hypertension
  7. Pritor [Concomitant]
     Indication: Hyperuricaemia
  8. LUMIGAN [Concomitant]
     Active Substance: BIMATOPROST
     Indication: Glaucoma
  9. SIMBRINZA [Concomitant]
     Active Substance: BRIMONIDINE TARTRATE\BRINZOLAMIDE
     Indication: Glaucoma
  10. ALLOPURINOL [Concomitant]
     Active Substance: ALLOPURINOL
     Dosage: 300 MILLIGRAM 1/2 TABLET DAILY 2.00 P.M
  11. BACTRIM [Concomitant]
     Active Substance: SULFAMETHOXAZOLE\TRIMETHOPRIM
     Dosage: 1 TABLET 3 TIMES A WEEK (MONDAY-WEDNESDAY AND FRIDAY)
  12. Folina [Concomitant]
     Dosage: 5 MILLIGRAM 1 TABLET X 10 DAYS PER MONTH

REACTIONS (13)
  - Circulatory collapse [Unknown]
  - Cardiac tamponade [Unknown]
  - Pericardial effusion [Unknown]
  - Pneumothorax [Recovered/Resolved]
  - Haemothorax [Unknown]
  - Infectious pleural effusion [Unknown]
  - Skin cancer [Unknown]
  - Pleural effusion [Unknown]
  - Lung infiltration [Unknown]
  - Skin infection [Recovered/Resolved]
  - Thoracic cavity drainage [Unknown]
  - Skin lesion [Unknown]
  - Off label use [Unknown]

NARRATIVE: CASE EVENT DATE: 20220614
